FAERS Safety Report 10866248 (Version 4)
Quarter: 2015Q2

REPORT INFORMATION
  Report Type: Spontaneous
  Country: NL (occurrence: None)
  Receive Date: 20150219
  Receipt Date: 20150415
  Transmission Date: 20150821
  Serious: Yes (Other)
  Sender: FDA-Public Use
  Company Number: 2015-10557

PATIENT
  Age: 67 Year
  Sex: Female

DRUGS (1)
  1. EYLEA [Suspect]
     Active Substance: AFLIBERCEPT
     Indication: PRODUCT USED FOR UNKNOWN INDICATION

REACTIONS (4)
  - Multiple use of single-use product [None]
  - Anterior chamber cell [None]
  - Anterior chamber pigmentation [None]
  - Eye inflammation [None]

NARRATIVE: CASE EVENT DATE: 20150122
